FAERS Safety Report 19882776 (Version 2)
Quarter: 2022Q2

REPORT INFORMATION
  Report Type: Spontaneous
  Country: PL (occurrence: PL)
  Receive Date: 20210924
  Receipt Date: 20220404
  Transmission Date: 20220721
  Serious: Yes (Congenital Anomaly, Other)
  Sender: FDA-Public Use
  Company Number: PL-ALLERGAN-2132970US

PATIENT

DRUGS (1)
  1. URSODIOL [Suspect]
     Active Substance: URSODIOL
     Indication: Exposure during pregnancy
     Dosage: UNK
     Route: 064

REACTIONS (2)
  - Cleft palate [Unknown]
  - Exposure during pregnancy [Unknown]
